FAERS Safety Report 6989198 (Version 1)
Quarter: 2020Q3

REPORT INFORMATION
  Report Type: Spontaneous
  Country: US (occurrence: US)
  Receive Date: 20090507
  Receipt Date: 20090507
  Transmission Date: 20201104
  Serious: Yes (Other)
  Sender: FDA-Public Use
  Company Number: US-KINGPHARMUSA00001-K200900500

PATIENT
  Sex: Male
  Weight: 69.6 kg

DRUGS (8)
  1. AMLODIPINE [Suspect]
     Active Substance: AMLODIPINE BESYLATE
  2. CEDIRANIB. [Suspect]
     Active Substance: CEDIRANIB
     Dosage: 10 MG, QD
     Route: 048
     Dates: start: 200903
  3. CEDIRANIB. [Suspect]
     Active Substance: CEDIRANIB
     Indication: PROSTATE CANCER
     Dosage: 20 MG, QD
     Route: 048
     Dates: start: 20090113, end: 20090317
  4. ALTACE [Suspect]
     Active Substance: RAMIPRIL
  5. LEXAPRO [Suspect]
     Active Substance: ESCITALOPRAM OXALATE
  6. PREDNISONE. [Suspect]
     Active Substance: PREDNISONE
  7. METFORMIN HYDROCHLORIDE. [Concomitant]
     Active Substance: METFORMIN HYDROCHLORIDE
  8. LOVENOX [Suspect]
     Active Substance: ENOXAPARIN SODIUM

REACTIONS (7)
  - Aspartate aminotransferase increased [Unknown]
  - Alanine aminotransferase increased [Unknown]
  - Fatigue [Unknown]
  - Hypotension [Unknown]
  - Diarrhoea [Unknown]
  - Liver function test abnormal [Unknown]
  - Dehydration [Unknown]

NARRATIVE: CASE EVENT DATE: 20090301
